FAERS Safety Report 16382854 (Version 1)
Quarter: 2019Q2

REPORT INFORMATION
  Report Type: Report from Study
  Country: ES (occurrence: ES)
  Receive Date: 20190603
  Receipt Date: 20190603
  Transmission Date: 20190711
  Serious: Yes (Hospitalization)
  Sender: FDA-Public Use
  Company Number: ES-PFIZER INC-2019227203

PATIENT
  Age: 85 Year
  Sex: Male

DRUGS (16)
  1. DEPRAX [SERTRALINE HYDROCHLORIDE] [Suspect]
     Active Substance: SERTRALINE HYDROCHLORIDE
     Indication: DEPRESSION
     Dosage: 50 MG, 1X/DAY(EVERY 24 HOURS, 0-0-1/2)
     Route: 048
     Dates: start: 2016
  2. SECALIP [Concomitant]
     Active Substance: FENOFIBRATE
     Dosage: UNK
     Route: 048
  3. SEGURIL [Concomitant]
     Active Substance: FUROSEMIDE
     Dosage: UNK
     Route: 048
  4. OMEPRAZOLE. [Concomitant]
     Active Substance: OMEPRAZOLE
     Dosage: UNK
     Route: 048
  5. EMCONCOR COR [Concomitant]
     Active Substance: BISOPROLOL
     Dosage: UNK
     Route: 048
  6. ACFOL [Concomitant]
     Active Substance: FOLIC ACID
     Dosage: UNK
     Route: 048
  7. UNIKET [Concomitant]
     Active Substance: ISOSORBIDE MONONITRATE
     Dosage: UNK
     Route: 048
  8. TESAVEL [Concomitant]
     Active Substance: SITAGLIPTIN PHOSPHATE
     Dosage: UNK
     Route: 048
  9. MONOPROST [Concomitant]
     Active Substance: LATANOPROST
     Dosage: UNK
     Route: 047
  10. SINTROM [Concomitant]
     Active Substance: ACENOCOUMAROL
     Dosage: UNK
     Route: 048
  11. ZALDIAR [Concomitant]
     Active Substance: ACETAMINOPHEN\TRAMADOL HYDROCHLORIDE
     Dosage: UNK
     Route: 048
  12. LORAZEPAM. [Suspect]
     Active Substance: LORAZEPAM
     Indication: DEPRESSION
     Dosage: 1 MG, 1X/DAY (EVERY 24 HOURS, 0-0-1)
     Route: 048
     Dates: start: 2016
  13. LEXATIN [BROMAZEPAM] [Suspect]
     Active Substance: BROMAZEPAM
     Indication: DEPRESSION
     Dosage: 1.5 MG, 3X/DAY (EVERY 8 HOURS, 1-1-1)
     Route: 048
     Dates: start: 2016, end: 20180911
  14. ESCITALOPRAM CINFA [Suspect]
     Active Substance: ESCITALOPRAM OXALATE
     Indication: DEPRESSION
     Dosage: 15 MG, 1X/DAY(1 EVERY 24 HOURS)
     Route: 048
     Dates: start: 2016, end: 20180911
  15. ZYLORIC [Concomitant]
     Active Substance: ALLOPURINOL
     Dosage: UNK
     Route: 048
  16. CRESTOR [Concomitant]
     Active Substance: ROSUVASTATIN CALCIUM
     Dosage: UNK
     Route: 048

REACTIONS (3)
  - Somnolence [Recovered/Resolved]
  - Depression [Recovered/Resolved]
  - Gait disturbance [Recovered/Resolved]

NARRATIVE: CASE EVENT DATE: 20180906
